FAERS Safety Report 9401385 (Version 1)
Quarter: 2013Q3

REPORT INFORMATION
  Report Type: Spontaneous
  Country: CN (occurrence: CN)
  Receive Date: 20130715
  Receipt Date: 20130715
  Transmission Date: 20140515
  Serious: Yes (Other)
  Sender: FDA-Public Use
  Company Number: CN-BAXTER-2013BAX026577

PATIENT
  Age: 54 Year
  Sex: Female
  Weight: 75 kg

DRUGS (7)
  1. 20% MANNITOL INJECTION [Suspect]
     Indication: INTERVERTEBRAL DISC PROTRUSION
     Route: 041
     Dates: start: 20111219, end: 20111221
  2. 20% MANNITOL INJECTION [Suspect]
     Indication: LUMBAR SPINAL STENOSIS
  3. 20% MANNITOL INJECTION [Suspect]
     Indication: SWELLING
  4. 20% MANNITOL INJECTION [Suspect]
     Indication: ANALGESIC THERAPY
  5. MECOBALAMIN [Suspect]
     Indication: INTERVERTEBRAL DISC PROTRUSION
     Route: 042
     Dates: start: 20111219, end: 20111221
  6. MECOBALAMIN [Suspect]
     Indication: LUMBAR SPINAL STENOSIS
  7. MECOBALAMIN [Suspect]
     Indication: SPINAL DISORDER

REACTIONS (1)
  - Rash generalised [Recovering/Resolving]
